FAERS Safety Report 22130659 (Version 1)
Quarter: 2023Q1

REPORT INFORMATION
  Report Type: Spontaneous
  Country: FR (occurrence: None)
  Receive Date: 20230323
  Receipt Date: 20230323
  Transmission Date: 20230418
  Serious: Yes (Other)
  Sender: FDA-Public Use
  Company Number: 2023A062937

PATIENT
  Age: 88 Year
  Sex: Male
  Weight: 82 kg

DRUGS (12)
  1. DAPAGLIFLOZIN [Suspect]
     Active Substance: DAPAGLIFLOZIN
     Indication: Cardiac failure
     Route: 050
     Dates: start: 20220629, end: 20220825
  2. SYMBICORT [Concomitant]
     Active Substance: BUDESONIDE\FORMOTEROL FUMARATE DIHYDRATE
     Indication: Chronic obstructive pulmonary disease
     Dosage: SYMBICORT TURBUHALER 400/12 MICROGRAMS/DOSE 2 DF DAILY
  3. ARANESP [Concomitant]
     Active Substance: DARBEPOETIN ALFA
     Indication: Anaemia
  4. BISOPROLOL [Concomitant]
     Active Substance: BISOPROLOL
     Indication: Hypertension
  5. DUPHALAC [Concomitant]
     Active Substance: LACTULOSE
     Indication: Constipation
  6. POTASSIUM CHLORIDE [Concomitant]
     Active Substance: POTASSIUM CHLORIDE
     Indication: Mineral supplementation
  7. INSULIN GLARGINE [Concomitant]
     Active Substance: INSULIN GLARGINE
     Indication: Diabetes mellitus
  8. FUROSEMIDE [Concomitant]
     Active Substance: FUROSEMIDE
     Indication: Hypertension
  9. VILDAGLIPTIN [Concomitant]
     Active Substance: VILDAGLIPTIN
     Indication: Diabetes mellitus
  10. FOLIC ACID [Concomitant]
     Active Substance: FOLIC ACID
     Indication: Vitamin supplementation
  11. OXAZEPAM [Concomitant]
     Active Substance: OXAZEPAM
     Indication: Anxiety
  12. TAHOR [Concomitant]
     Active Substance: ATORVASTATIN CALCIUM
     Indication: Dyslipidaemia

REACTIONS (2)
  - Limb injury [Recovering/Resolving]
  - Osteitis [Recovering/Resolving]

NARRATIVE: CASE EVENT DATE: 20220701
